FAERS Safety Report 5627751-5 (Version None)
Quarter: 2008Q1

REPORT INFORMATION
  Report Type: 
  Country: None (occurrence: None)
  Receive Date: 20080215
  Receipt Date: 20080215
  Transmission Date: 20080703
  Serious: Yes (Other)
  Sender: FDA-Public Use
  Company Number: A0707551A

PATIENT
  Age: 78 Year
  Sex: Female
  Weight: 64 kg

DRUGS (5)
  1. ROSIGLITAZONE [Suspect]
     Dosage: 2MG AT NIGHT
     Route: 048
     Dates: start: 20080111, end: 20080129
  2. GLUCOPHAGE [Concomitant]
     Dosage: 500MG PER DAY
     Route: 048
     Dates: start: 20071127
  3. ISORDIL [Concomitant]
     Indication: HYPERTENSION
     Dosage: 30MG PER DAY
     Route: 048
     Dates: start: 20050524
  4. DILTIAZEM HCL [Concomitant]
     Dosage: 240MG PER DAY
     Route: 048
     Dates: start: 20050524
  5. ASPIRIN [Concomitant]
     Dosage: 160MG PER DAY
     Route: 048
     Dates: start: 20050524

REACTIONS (4)
  - MYOCARDIAL ISCHAEMIA [None]
  - PAIN [None]
  - SYSTOLIC HYPERTENSION [None]
  - TREMOR [None]
